FAERS Safety Report 11379097 (Version 1)
Quarter: 2015Q3

REPORT INFORMATION
  Report Type: Spontaneous
  Country: GB (occurrence: None)
  Receive Date: 20150812
  Receipt Date: 20150812
  Transmission Date: 20151125
  Serious: Yes (Hospitalization)
  Sender: FDA-Public Use
  Company Number: 2015RR-099779

PATIENT
  Age: 71 Year

DRUGS (4)
  1. TRIMETHOPRIM. [Concomitant]
     Active Substance: TRIMETHOPRIM
  2. SERTRALINE [Suspect]
     Active Substance: SERTRALINE HYDROCHLORIDE
     Indication: DEPRESSION
     Route: 048
     Dates: start: 20150603, end: 20150609
  3. RAMIPRIL. [Concomitant]
     Active Substance: RAMIPRIL
  4. BENDROFLUMETHIAZIDE [Suspect]
     Active Substance: BENDROFLUMETHIAZIDE
     Indication: HYPERTENSION
     Route: 048
     Dates: end: 20150609

REACTIONS (3)
  - Hyponatraemia [None]
  - Thirst [None]
  - Urinary tract infection [None]

NARRATIVE: CASE EVENT DATE: 20150609
